FAERS Safety Report 8273506-5 (Version None)
Quarter: 2012Q2

REPORT INFORMATION
  Report Type: 
  Country: None (occurrence: None)
  Receive Date: 20120409
  Receipt Date: 20120409
  Transmission Date: 20120825
  Serious: Yes (Death)
  Sender: FDA-Public Use
  Company Number: None

PATIENT
  Age: 84 Year
  Sex: Male

DRUGS (2)
  1. LUPRON DEPOT [Suspect]
     Indication: PROSTATE CANCER
     Dosage: 30 MG Q 4 MO IM
     Route: 030
     Dates: start: 20080408, end: 20120101
  2. TARCEVA [Suspect]
     Indication: LUNG NEOPLASM MALIGNANT
     Dosage: 150 MG DAILY PO
     Route: 048
     Dates: start: 20060313, end: 20120101

REACTIONS (1)
  - LEUKAEMIA [None]
